FAERS Safety Report 9123211 (Version 1)
Quarter: 2013Q1

REPORT INFORMATION
  Report Type: Spontaneous
  Country: GR (occurrence: None)
  Receive Date: 20130129
  Receipt Date: 20130129
  Transmission Date: 20140127
  Serious: Yes (Hospitalization)
  Sender: FDA-Public Use
  Company Number: TPA2013A00974

PATIENT
  Age: 68 Year
  Sex: Female

DRUGS (1)
  1. ADENURIC (FEBUXOSTAT) [Suspect]
     Dosage: 80 MG  (80 MG, 1 IN 1 D)  ORAL?UNKNOWN  -  ??/JAN/2013
     Route: 048
     Dates: end: 201301

REACTIONS (2)
  - Pyrexia [None]
  - Enanthema [None]
